FAERS Safety Report 8140398-4 (Version None)
Quarter: 2012Q1

REPORT INFORMATION
  Report Type: 
  Country: None (occurrence: None)
  Receive Date: 20120216
  Receipt Date: 20120213
  Transmission Date: 20120608
  Serious: No
  Sender: FDA-Public Use
  Company Number: US-PFIZER INC-2012038900

PATIENT
  Sex: Female
  Weight: 77.1 kg

DRUGS (6)
  1. METOPROLOL [Concomitant]
     Indication: HYPERTENSION
     Dosage: UNK
  2. LYRICA [Suspect]
     Indication: PAIN
  3. OXYCONTIN [Concomitant]
     Indication: PAIN
     Dosage: UNK
  4. LYRICA [Suspect]
     Indication: NEUROPATHY PERIPHERAL
     Dosage: 800 MG, 3X/DAY
     Route: 048
     Dates: end: 20120202
  5. LYRICA [Suspect]
     Indication: PARAESTHESIA
  6. LIPITOR [Concomitant]
     Indication: BLOOD CHOLESTEROL INCREASED
     Dosage: UNK

REACTIONS (3)
  - VEIN DISCOLOURATION [None]
  - PAIN [None]
  - OEDEMA PERIPHERAL [None]
